FAERS Safety Report 13116936 (Version 1)
Quarter: 2017Q1

REPORT INFORMATION
  Report Type: Spontaneous
  Country: US (occurrence: US)
  Receive Date: 20170116
  Receipt Date: 20170116
  Transmission Date: 20170428
  Serious: Yes (Other)
  Sender: FDA-Public Use
  Company Number: US-ROCHE-1878371

PATIENT
  Age: 57 Year
  Sex: Male
  Weight: 108.01 kg

DRUGS (23)
  1. ENBREL [Suspect]
     Active Substance: ETANERCEPT
     Indication: RHEUMATOID ARTHRITIS
     Route: 065
  2. METHOTREXATE. [Suspect]
     Active Substance: METHOTREXATE
     Indication: PRODUCT USED FOR UNKNOWN INDICATION
     Route: 065
  3. GABAPENTIN. [Concomitant]
     Active Substance: GABAPENTIN
  4. LYRICA [Concomitant]
     Active Substance: PREGABALIN
     Route: 048
  5. GLUCOTROL [Concomitant]
     Active Substance: GLIPIZIDE
     Route: 048
  6. METFORMIN HCL [Concomitant]
     Active Substance: METFORMIN HYDROCHLORIDE
  7. DELTASONE [Concomitant]
     Active Substance: PREDNISONE
     Route: 048
  8. LIPITOR [Concomitant]
     Active Substance: ATORVASTATIN CALCIUM
  9. NOVOLOG [Concomitant]
     Active Substance: INSULIN ASPART
  10. XELJANZ [Concomitant]
     Active Substance: TOFACITINIB CITRATE
  11. PLAVIX [Concomitant]
     Active Substance: CLOPIDOGREL BISULFATE
  12. PERCOCET [Concomitant]
     Active Substance: ACETAMINOPHEN\OXYCODONE HYDROCHLORIDE
     Route: 048
  13. TRILEPTAL [Concomitant]
     Active Substance: OXCARBAZEPINE
     Route: 048
  14. IMDUR [Concomitant]
     Active Substance: ISOSORBIDE MONONITRATE
  15. FOLIC ACID. [Concomitant]
     Active Substance: FOLIC ACID
     Route: 048
  16. HYDROCHLOROTHIAZIDE. [Concomitant]
     Active Substance: HYDROCHLOROTHIAZIDE
     Route: 048
  17. ACTEMRA [Suspect]
     Active Substance: TOCILIZUMAB
     Indication: PRODUCT USED FOR UNKNOWN INDICATION
     Route: 065
  18. PLAQUENIL [Concomitant]
     Active Substance: HYDROXYCHLOROQUINE SULFATE
  19. ZANTAC [Concomitant]
     Active Substance: RANITIDINE HYDROCHLORIDE
  20. PENNSAID [Concomitant]
     Active Substance: DICLOFENAC SODIUM
  21. METOPROLOL TARTRATE. [Concomitant]
     Active Substance: METOPROLOL TARTRATE
  22. LISINOPRIL. [Concomitant]
     Active Substance: LISINOPRIL
  23. ATACAND [Concomitant]
     Active Substance: CANDESARTAN CILEXETIL
     Route: 048

REACTIONS (14)
  - Urticaria [Unknown]
  - Mobility decreased [Unknown]
  - Genital rash [Unknown]
  - Arthropathy [Unknown]
  - Dyspnoea [Unknown]
  - Musculoskeletal stiffness [Unknown]
  - Cyst [Unknown]
  - Joint range of motion decreased [Unknown]
  - Treatment failure [Unknown]
  - Synovitis [Unknown]
  - Arthralgia [Unknown]
  - Deep vein thrombosis [Unknown]
  - Joint swelling [Unknown]
  - Hepatic enzyme increased [Unknown]

NARRATIVE: CASE EVENT DATE: 20140325
